FAERS Safety Report 9199612 (Version 5)
Quarter: 2015Q1

REPORT INFORMATION
  Report Type: Spontaneous
  Country: US (occurrence: US)
  Receive Date: 20130329
  Receipt Date: 20150202
  Transmission Date: 20150721
  Serious: No
  Sender: FDA-Public Use
  Company Number: US-GLAXOSMITHKLINE-A1012062A

PATIENT

DRUGS (37)
  1. FIBER SUPPLEMENT [Concomitant]
  2. PROMETHAZINE [Concomitant]
     Active Substance: PROMETHAZINE\PROMETHAZINE HYDROCHLORIDE
  3. PEPCID COMPLETE [Concomitant]
     Active Substance: CALCIUM CARBONATE\FAMOTIDINE\MAGNESIUM HYDROXIDE
  4. FLUOROMETHOLONE EYE DROPS [Concomitant]
  5. DIFLUCAN [Concomitant]
     Active Substance: FLUCONAZOLE
  6. BENLYSTA [Suspect]
     Active Substance: BELIMUMAB
     Indication: SYSTEMIC LUPUS ERYTHEMATOSUS
     Route: 042
     Dates: start: 201205
  7. LORTAB [Concomitant]
     Active Substance: ACETAMINOPHEN\HYDROCODONE BITARTRATE
  8. FOLIC ACID. [Concomitant]
     Active Substance: FOLIC ACID
  9. AMBIEN CR [Concomitant]
     Active Substance: ZOLPIDEM TARTRATE
  10. TUMS [Concomitant]
     Active Substance: CALCIUM CARBONATE
  11. PREDNISONE. [Concomitant]
     Active Substance: PREDNISONE
  12. CENTRUM [Concomitant]
     Active Substance: VITAMINS
  13. TYLENOL [Concomitant]
     Active Substance: ACETAMINOPHEN
  14. NORCO [Concomitant]
     Active Substance: ACETAMINOPHEN\HYDROCODONE BITARTRATE
  15. CIPROFLOXACIN. [Concomitant]
     Active Substance: CIPROFLOXACIN
  16. ZANTAC [Concomitant]
     Active Substance: RANITIDINE HYDROCHLORIDE
  17. NITROGLYCERIN. [Concomitant]
     Active Substance: NITROGLYCERIN
  18. REFRESH PLUS EYE DROPS [Concomitant]
  19. CALCIUM [Concomitant]
     Active Substance: CALCIUM
  20. BIOTENE [Concomitant]
     Active Substance: SODIUM MONOFLUOROPHOSPHATE
  21. STEROID INJECTION [Concomitant]
     Active Substance: UNSPECIFIED INGREDIENT
  22. RESTASIS [Concomitant]
     Active Substance: CYCLOSPORINE
  23. VITAMIN D [Concomitant]
     Active Substance: CHOLECALCIFEROL
  24. FENTANYL TRANSDERMAL SYSTEM [Concomitant]
     Active Substance: FENTANYL
  25. VITAMIN B12 [Concomitant]
     Active Substance: CYANOCOBALAMIN
  26. RANITIDINE [Concomitant]
     Active Substance: RANITIDINE\RANITIDINE HYDROCHLORIDE
  27. BIOTIN [Concomitant]
     Active Substance: BIOTIN
  28. LYRICA [Concomitant]
     Active Substance: PREGABALIN
  29. ISO-BID [Concomitant]
     Active Substance: ISOSORBIDE DINITRATE
  30. TOPROL XL [Concomitant]
     Active Substance: METOPROLOL SUCCINATE
  31. ACYCLOVIR. [Concomitant]
     Active Substance: ACYCLOVIR
  32. BENADRYL [Concomitant]
     Active Substance: DIPHENHYDRAMINE HYDROCHLORIDE
  33. PENICILLIN [Concomitant]
     Active Substance: PENICILLIN
  34. UNKNOWN MEDICATION [Concomitant]
     Active Substance: UNSPECIFIED INGREDIENT
  35. NYSTATIN POWDER (EXCEPT [DPO]) [Concomitant]
     Route: 061
  36. DOXEPIN [Concomitant]
     Active Substance: DOXEPIN
  37. ZOFRAN [Concomitant]
     Active Substance: ONDANSETRON HYDROCHLORIDE

REACTIONS (16)
  - Nausea [Unknown]
  - Dyspepsia [Unknown]
  - Hyperhidrosis [Unknown]
  - Pain of skin [Unknown]
  - Chest pain [Unknown]
  - Vomiting [Unknown]
  - Rash papular [Unknown]
  - Pyrexia [Unknown]
  - Paranasal sinus hypersecretion [Unknown]
  - Headache [Unknown]
  - Malaise [Unknown]
  - Sinusitis [Unknown]
  - Oropharyngeal pain [Unknown]
  - Asthenia [Unknown]
  - Fatigue [Unknown]
  - Pain [Unknown]

NARRATIVE: CASE EVENT DATE: 201205
